FAERS Safety Report 5220721-0 (Version None)
Quarter: 2007Q1

REPORT INFORMATION
  Report Type: 
  Country: None (occurrence: None)
  Receive Date: 20070125
  Receipt Date: 20070125
  Transmission Date: 20070707
  Serious: No
  Sender: FDA-Public Use
  Company Number: None

PATIENT
  Sex: Female
  Weight: 95.2554 kg

DRUGS (1)
  1. ARIXTRA [Suspect]
     Indication: PULMONARY EMBOLISM
     Dosage: 7.5MG/0.6ML  EVERY 24 HOURS  SUB-Q
     Route: 058
     Dates: start: 20070122

REACTIONS (1)
  - INCORRECT DOSE ADMINISTERED [None]
